FAERS Safety Report 17041519 (Version 1)
Quarter: 2019Q4

REPORT INFORMATION
  Report Type: Spontaneous
  Country: GB (occurrence: GB)
  Receive Date: 20191118
  Receipt Date: 20191118
  Transmission Date: 20200122
  Serious: Yes (Hospitalization)
  Sender: FDA-Public Use
  Company Number: GB-TEVA-2019-GB-1137809

PATIENT
  Age: 44 Year
  Sex: Female

DRUGS (4)
  1. VENLAFAXINE [Suspect]
     Active Substance: VENLAFAXINE HYDROCHLORIDE
     Indication: DEPRESSION
     Dosage: 37.5 MILLIGRAM
     Route: 048
     Dates: start: 20180516, end: 20180521
  2. CODEINE [Concomitant]
     Active Substance: CODEINE
  3. ZOPICLONE [Concomitant]
     Active Substance: ZOPICLONE
  4. COLECALCIFEROL [Concomitant]
     Active Substance: CHOLECALCIFEROL

REACTIONS (3)
  - Blood sodium decreased [Recovering/Resolving]
  - Confusional state [Unknown]
  - Headache [Unknown]

NARRATIVE: CASE EVENT DATE: 20180521
